FAERS Safety Report 11142200 (Version 2)
Quarter: 2015Q4

REPORT INFORMATION
  Report Type: Spontaneous
  Country: US (occurrence: US)
  Receive Date: 20150527
  Receipt Date: 20151228
  Transmission Date: 20160304
  Serious: Yes (Congenital Anomaly, Other)
  Sender: FDA-Public Use
  Company Number: US-APOTEX-2015AP006291

PATIENT
  Sex: Female
  Weight: 3.41 kg

DRUGS (18)
  1. INSULIN [Concomitant]
     Active Substance: INSULIN NOS
     Indication: GESTATIONAL DIABETES
     Route: 064
  2. PROPRANOLOL [Concomitant]
     Active Substance: PROPRANOLOL\PROPRANOLOL HYDROCHLORIDE
     Indication: SUPRAVENTRICULAR TACHYCARDIA
     Dosage: 2 MG, TID
     Route: 048
  3. AMIODARONE HYDROCHLORIDE. [Suspect]
     Active Substance: AMIODARONE HYDROCHLORIDE
     Dosage: 300 MG EVERY 6 HOURS FOR 4 DOSES
     Route: 064
  4. AMIODARONE HCL INJECTION [Suspect]
     Active Substance: AMIODARONE HYDROCHLORIDE
     Indication: TACHYCARDIA FOETAL
     Dosage: 5 MG THREE TIMES FROM HOSPITAL DAYS 14 TO 21 AND ON DAY 25
     Route: 042
  5. DIGOXIN. [Concomitant]
     Active Substance: DIGOXIN
     Indication: TACHYCARDIA FOETAL
     Dosage: LOADING DOSE: 500MCG
     Route: 064
  6. GLIBENCLAMIDE [Concomitant]
     Active Substance: GLYBURIDE
     Indication: GESTATIONAL DIABETES
     Route: 064
  7. DIGOXIN. [Concomitant]
     Active Substance: DIGOXIN
     Dosage: 500 MCG EVERY 6 HOURS FOR 4 DOSES
     Route: 064
  8. DIGOXIN. [Concomitant]
     Active Substance: DIGOXIN
     Dosage: 500 MCG EVERY 12 HOURS
     Route: 064
  9. AMIODARONE HYDROCHLORIDE. [Suspect]
     Active Substance: AMIODARONE HYDROCHLORIDE
     Dosage: 300 MG EVERY 12 HOURS
     Route: 064
  10. AMIODARONE HYDROCHLORIDE. [Suspect]
     Active Substance: AMIODARONE HYDROCHLORIDE
     Dosage: 8 MG, BID
     Route: 048
  11. GLYBURIDE. [Concomitant]
     Active Substance: GLYBURIDE
     Indication: DIABETES MELLITUS
  12. FLECAINIDE [Concomitant]
     Active Substance: FLECAINIDE
     Dosage: 5 MG, TID
     Route: 048
  13. SEROQUEL [Concomitant]
     Active Substance: QUETIAPINE FUMARATE
     Indication: DEPRESSION
     Route: 065
  14. FLECAINIDE [Concomitant]
     Active Substance: FLECAINIDE
     Indication: TACHYCARDIA FOETAL
     Dosage: 150 MG, BID
     Route: 064
  15. DIGOXIN. [Concomitant]
     Active Substance: DIGOXIN
     Dosage: 250 MCG EVERY 6 HOURS
     Route: 064
  16. AMIODARONE HYDROCHLORIDE. [Suspect]
     Active Substance: AMIODARONE HYDROCHLORIDE
     Indication: TACHYCARDIA FOETAL
     Dosage: 600 MG EVERY 6 HOURS FOR 4 DOSES
     Route: 064
  17. AMIODARONE HCL INJECTION [Suspect]
     Active Substance: AMIODARONE HYDROCHLORIDE
     Dosage: UNK
  18. ZOLOFT [Concomitant]
     Active Substance: SERTRALINE HYDROCHLORIDE
     Indication: DEPRESSION
     Route: 064

REACTIONS (2)
  - Congenital hypothyroidism [Recovered/Resolved]
  - Foetal exposure during pregnancy [Recovered/Resolved]
